FAERS Safety Report 20636173 (Version 1)
Quarter: 2022Q1

REPORT INFORMATION
  Report Type: Spontaneous
  Country: US (occurrence: None)
  Receive Date: 20220324
  Receipt Date: 20220324
  Transmission Date: 20220423
  Serious: Yes (Death)
  Sender: FDA-Public Use
  Company Number: None

PATIENT
  Age: 71 Year
  Sex: Male

DRUGS (22)
  1. LOKELMA [Suspect]
     Active Substance: SODIUM ZIRCONIUM CYCLOSILICATE
     Indication: Hyperlipidaemia
     Dosage: FREQUENCY : DAILY;?
     Route: 048
     Dates: start: 20200803, end: 20220316
  2. DIABETES MELLITUS [Concomitant]
  3. HYPERKALEMIA [Concomitant]
  4. PERIPHERAL NEUROPATHY [Concomitant]
  5. GLAUCOMA [Concomitant]
  6. HYPERLIPIDEMIA [Concomitant]
  7. CLOTTING DISORDER [Concomitant]
  8. EYE DISEASE [Concomitant]
  9. GASTROINTESTINAL DISEASE [Concomitant]
  10. GASTROESOPHAGEAL REFLUX DISEASE [Concomitant]
  11. ELECTROLYTE DISORDER [Concomitant]
  12. IRON DEFICIENCY [Concomitant]
  13. GERIATRIC PATIENTS [Concomitant]
  14. BLINK TEARS LUBRICATING EYE DROPS [Concomitant]
  15. ASPIRIN LOW DOSE TABLETS [Concomitant]
  16. SODIUM BICARBONATE [Concomitant]
     Active Substance: SODIUM BICARBONATE
  17. GABAPENTIN [Concomitant]
     Active Substance: GABAPENTIN
  18. GLIPIZIDE [Concomitant]
     Active Substance: GLIPIZIDE
  19. IRON TABLETS [Concomitant]
  20. LATANOPROST [Concomitant]
     Active Substance: LATANOPROST
  21. PANTOPRAZOLE [Concomitant]
     Active Substance: PANTOPRAZOLE
  22. PLAVIX [Concomitant]
     Active Substance: CLOPIDOGREL BISULFATE

REACTIONS (1)
  - Death [None]

NARRATIVE: CASE EVENT DATE: 20220316
